FAERS Safety Report 4961587-3 (Version None)
Quarter: 2006Q1

REPORT INFORMATION
  Report Type: 
  Country: None (occurrence: None)
  Receive Date: 20060329
  Receipt Date: 20060317
  Transmission Date: 20060701
  Serious: Yes (Death, Life-Threatening, Hospitalization)
  Sender: FDA-Public Use
  Company Number: 2006022600

PATIENT
  Age: 80 Year
  Sex: Female
  Weight: 38 kg

DRUGS (13)
  1. NORVASC [Suspect]
     Indication: HYPERTENSION
     Dosage: 5 MG (1 IN 24 HR); ORAL
     Route: 048
     Dates: start: 20060117, end: 20060213
  2. VEGETAMIN A (CHLORPROMAZINE HYDROCHLORIDE, PHENOBARBITAL, PROMETHAZINE [Suspect]
     Indication: DEPRESSION
     Dosage: 2 TABLETS (1 IN 24 HR); ORAL
     Route: 048
     Dates: start: 20051231, end: 20060213
  3. CEFTAZIDIME [Suspect]
     Indication: URINARY TRACT INFECTION
     Dosage: 1 GRAM (1 GRAM, 1 IN 24)
     Dates: start: 20060126, end: 20060205
  4. TAMIFLU [Suspect]
     Indication: INFLUENZA
     Dosage: 150 MG (75 MG 1 IN 12 HR); ORAL
     Route: 048
     Dates: start: 20060128, end: 20060201
  5. CALONAL (PARACETAMOL) [Suspect]
     Indication: PYREXIA
     Dosage: UNKNOWN (PRN); ORAL
     Route: 048
     Dates: start: 20060128, end: 20060213
  6. ALDACTONE [Concomitant]
  7. VOLTAREN [Concomitant]
  8. AMINOFLUID (AMINO ACIDS NOS, ELECTROLYTES NOS, GLUCOSE) [Concomitant]
  9. VITAMIN B 1-6-12 (CYANOCOBALAMIN, PYRIDOXINE HYDROCHLORIDE, THIAMINE H [Concomitant]
  10. POTASSIUM CHLORIDE [Concomitant]
  11. PENMALIN (PIPERACILLIN SODIUM) [Concomitant]
  12. LASIX [Concomitant]
  13. MICARDIS [Concomitant]

REACTIONS (15)
  - BACTERIA URINE IDENTIFIED [None]
  - DISSEMINATED INTRAVASCULAR COAGULATION [None]
  - EYE DISORDER [None]
  - GENERALISED OEDEMA [None]
  - HAEMORRHAGE [None]
  - HYPERSENSITIVITY [None]
  - INFECTION [None]
  - INFLUENZA SEROLOGY POSITIVE [None]
  - LYMPHOCYTE STIMULATION TEST POSITIVE [None]
  - MULTI-ORGAN FAILURE [None]
  - NASOPHARYNGITIS [None]
  - PLEURAL EFFUSION [None]
  - PYREXIA [None]
  - STEVENS-JOHNSON SYNDROME [None]
  - TOXIC EPIDERMAL NECROLYSIS [None]
